FAERS Safety Report 24041333 (Version 3)
Quarter: 2024Q3

REPORT INFORMATION
  Report Type: Spontaneous
  Country: IT (occurrence: IT)
  Receive Date: 20240702
  Receipt Date: 20240717
  Transmission Date: 20241016
  Serious: Yes (Death, Hospitalization, Other)
  Sender: BIOVITRUM
  Company Number: IT-BIOVITRUM-2024-IT-009351

PATIENT
  Age: 78 Year
  Sex: Female

DRUGS (3)
  1. DOPTELET [Suspect]
     Active Substance: AVATROMBOPAG MALEATE
     Indication: Immune thrombocytopenia
     Dosage: 3 TIMES A WEEK 40MG
  2. DOPTELET [Suspect]
     Active Substance: AVATROMBOPAG MALEATE
     Dosage: 20 MG THE OTHER DAYS
  3. DOPTELET [Suspect]
     Active Substance: AVATROMBOPAG MALEATE
     Dosage: DAILY
     Dates: start: 20240405, end: 20240501

REACTIONS (4)
  - Gastrointestinal ischaemia [Fatal]
  - Myocardial infarction [Not Recovered/Not Resolved]
  - Drug ineffective [Unknown]
  - Thrombosis [Unknown]

NARRATIVE: CASE EVENT DATE: 20240401
